FAERS Safety Report 9112645 (Version 1)
Quarter: 2013Q1

REPORT INFORMATION
  Report Type: Spontaneous
  Country: US (occurrence: US)
  Receive Date: 20130211
  Receipt Date: 20130211
  Transmission Date: 20140127
  Serious: Yes (Hospitalization, Other)
  Sender: FDA-Public Use
  Company Number: US-PFIZER INC-2013047450

PATIENT
  Age: 39 Year
  Sex: Female

DRUGS (3)
  1. REVATIO [Suspect]
     Dosage: UNK
  2. LETAIRIS [Suspect]
     Indication: PULMONARY ARTERIAL HYPERTENSION
     Dosage: 10 MG, AS NEEDED
     Route: 048
     Dates: start: 20110617
  3. EPOPROSTENOL [Suspect]
     Dosage: UNK

REACTIONS (4)
  - Palpitations [Unknown]
  - Cardiac flutter [Unknown]
  - Stress [Unknown]
  - Infusion site pruritus [Unknown]
